FAERS Safety Report 5346192-1 (Version None)
Quarter: 2007Q2

REPORT INFORMATION
  Report Type: 
  Country: None (occurrence: None)
  Receive Date: 20070605
  Receipt Date: 20070525
  Transmission Date: 20071010
  Serious: Yes (Hospitalization)
  Sender: FDA-Public Use
  Company Number: AU-ELI_LILLY_AND_COMPANY-AU200705006724

PATIENT
  Age: 4 Year
  Sex: Male
  Weight: 20.7 kg

DRUGS (1)
  1. HUMATROPE [Suspect]
     Indication: GROWTH HORMONE DEFICIENCY
     Dosage: 0.68 MG, OTHER, 7 PER WEEK
     Route: 058
     Dates: start: 20040212

REACTIONS (1)
  - HYPOGLYCAEMIA [None]
